FAERS Safety Report 6813548-7 (Version None)
Quarter: 2010Q3

REPORT INFORMATION
  Report Type: 
  Country: None (occurrence: None)
  Receive Date: 20100701
  Receipt Date: 20100624
  Transmission Date: 20110219
  Serious: Yes (Other)
  Sender: FDA-Public Use
  Company Number: US-PFIZER INC-2010033998

PATIENT
  Sex: Female
  Weight: 97.506 kg

DRUGS (8)
  1. CHANTIX [Suspect]
     Indication: SMOKING CESSATION THERAPY
     Dosage: 1 MG, 2X/DAY
     Route: 048
     Dates: start: 20090101, end: 20100401
  2. CHANTIX [Suspect]
     Dosage: 1 MG, 2X/DAY
     Route: 048
     Dates: start: 20100301, end: 20100101
  3. SEROQUEL [Concomitant]
     Dosage: 200 MG, UNK
  4. VASOTEC [Concomitant]
     Indication: BLOOD PRESSURE
     Dosage: 20 MG, UNK
  5. LIPITOR [Concomitant]
     Indication: BLOOD CHOLESTEROL INCREASED
     Dosage: UNK
  6. PRAZOSIN [Concomitant]
     Indication: BLOOD CHOLESTEROL INCREASED
     Dosage: 20 MG, 1X/DAY
     Route: 048
  7. LORTAB [Concomitant]
     Indication: PAIN
     Dosage: 15 MG, 4X/DAY
     Route: 048
  8. XANAX [Concomitant]
     Indication: BIPOLAR DISORDER
     Dosage: 6 MG, 1X/DAY
     Route: 048

REACTIONS (15)
  - AGGRESSION [None]
  - ANGER [None]
  - BIPOLAR DISORDER [None]
  - BLADDER DILATATION [None]
  - CHOKING [None]
  - DEPRESSION [None]
  - DYSPHAGIA [None]
  - LIP SWELLING [None]
  - MANIA [None]
  - ORAL FUNGAL INFECTION [None]
  - PLEURISY [None]
  - SCHIZOPHRENIA [None]
  - SPEECH DISORDER [None]
  - SWOLLEN TONGUE [None]
  - UPPER RESPIRATORY FUNGAL INFECTION [None]
